FAERS Safety Report 19094527 (Version 1)
Quarter: 2021Q2

REPORT INFORMATION
  Report Type: Spontaneous
  Country: US (occurrence: US)
  Receive Date: 20210405
  Receipt Date: 20210405
  Transmission Date: 20210717
  Serious: No
  Sender: FDA-Public Use
  Company Number: US-JAZZ-2020-US-016462

PATIENT
  Age: 51 Year
  Sex: Female

DRUGS (5)
  1. SUNOSI [Suspect]
     Active Substance: SOLRIAMFETOL
     Indication: NARCOLEPSY
     Dosage: 150 MILLIGRAM, QD
     Dates: start: 20201116
  2. ASPIRIN BAYER [Concomitant]
     Active Substance: ASPIRIN
  3. TYLENOL [Concomitant]
     Active Substance: ACETAMINOPHEN
  4. KLONOPIN [Concomitant]
     Active Substance: CLONAZEPAM
  5. SUBUTEX [Concomitant]
     Active Substance: BUPRENORPHINE HYDROCHLORIDE

REACTIONS (3)
  - Feeling hot [Recovered/Resolved]
  - Wrong technique in product usage process [Unknown]
  - Headache [Recovered/Resolved]

NARRATIVE: CASE EVENT DATE: 20201116
